FAERS Safety Report 23134385 (Version 2)
Quarter: 2023Q4

REPORT INFORMATION
  Report Type: Spontaneous
  Country: AU (occurrence: AU)
  Receive Date: 20231101
  Receipt Date: 20231128
  Transmission Date: 20240110
  Serious: Yes (Other)
  Sender: FDA-Public Use
  Company Number: AU-SA-2023SA327910

PATIENT
  Sex: Male

DRUGS (2)
  1. INSULIN GLARGINE [Suspect]
     Active Substance: INSULIN GLARGINE
     Indication: Maternal exposure timing unspecified
     Dosage: 320 IU, QD
     Route: 064
  2. INSULIN ASPART [Suspect]
     Active Substance: INSULIN ASPART
     Indication: Maternal exposure timing unspecified
     Dosage: 60-80 IU, TID
     Route: 064

REACTIONS (3)
  - Foetal distress syndrome [Unknown]
  - Premature baby [Unknown]
  - Foetal exposure during pregnancy [Unknown]
